FAERS Safety Report 20037863 (Version 2)
Quarter: 2021Q4

REPORT INFORMATION
  Report Type: Spontaneous
  Country: JP (occurrence: JP)
  Receive Date: 20211105
  Receipt Date: 20211115
  Transmission Date: 20220303
  Serious: Yes (Hospitalization)
  Sender: FDA-Public Use
  Company Number: JP-ORPHANEU-2021004590

PATIENT

DRUGS (7)
  1. COSMEGEN [Suspect]
     Active Substance: DACTINOMYCIN
     Indication: Benign hydatidiform mole
     Dosage: 0.44 MILLIGRAM PER DAY
     Route: 042
     Dates: start: 20210921, end: 20210925
  2. COSMEGEN [Suspect]
     Active Substance: DACTINOMYCIN
     Dosage: UNK, 2ND COURSE
     Dates: start: 20211004, end: 20211008
  3. OLANZAPINE [Concomitant]
     Active Substance: OLANZAPINE
     Indication: Product used for unknown indication
     Dosage: UNK
     Dates: start: 20210921
  4. APREPITANT [Concomitant]
     Active Substance: APREPITANT
     Indication: Product used for unknown indication
     Dosage: UNK
     Dates: start: 20210921
  5. DEXAMETHASONE SODIUM PHOSPHATE [Concomitant]
     Active Substance: DEXAMETHASONE SODIUM PHOSPHATE
     Indication: Prophylaxis of nausea and vomiting
     Dosage: UNK
     Dates: start: 20210921
  6. ETIZOLAM [Concomitant]
     Active Substance: ETIZOLAM
     Indication: Product used for unknown indication
     Dosage: UNK
     Dates: start: 20210812
  7. PALONOSETRON HYDROCHLORIDE [Concomitant]
     Active Substance: PALONOSETRON HYDROCHLORIDE
     Indication: Product used for unknown indication
     Dosage: UNK
     Route: 041
     Dates: start: 20210921

REACTIONS (3)
  - Malaise [Recovering/Resolving]
  - Acne [Recovering/Resolving]
  - Folliculitis [Recovering/Resolving]

NARRATIVE: CASE EVENT DATE: 20210926
